FAERS Safety Report 22099435 (Version 1)
Quarter: 2023Q1

REPORT INFORMATION
  Report Type: Report from Study
  Country: US (occurrence: US)
  Receive Date: 20230315
  Receipt Date: 20230315
  Transmission Date: 20230417
  Serious: Yes (Other)
  Sender: FDA-Public Use
  Company Number: US-MYLANLABS-2023M1026652

PATIENT
  Sex: Male
  Weight: 151.05 kg

DRUGS (3)
  1. CLOZAPINE [Suspect]
     Active Substance: CLOZAPINE
     Indication: Schizophrenia
     Dosage: 600 MILLIGRAM, QD
     Route: 065
  2. DEPAKOTE [Concomitant]
     Active Substance: DIVALPROEX SODIUM
     Dosage: UNK
     Route: 065
  3. RISPERIDONE [Concomitant]
     Active Substance: RISPERIDONE
     Dosage: UNK
     Route: 065

REACTIONS (7)
  - Monocytosis [Unknown]
  - Eosinophilia [Unknown]
  - Lymphocyte count increased [Unknown]
  - High density lipoprotein decreased [Unknown]
  - Psychiatric symptom [Recovering/Resolving]
  - Basophil count decreased [Unknown]
  - Granulocyte count decreased [Unknown]
